FAERS Safety Report 4631641-4 (Version None)
Quarter: 2005Q2

REPORT INFORMATION
  Report Type: 
  Country: None (occurrence: None)
  Receive Date: 20050407
  Receipt Date: 20050330
  Transmission Date: 20051028
  Serious: Yes (Death)
  Sender: FDA-Public Use
  Company Number: 2005-01093

PATIENT
  Age: 37 Year
  Sex: Male

DRUGS (6)
  1. HEPARIN SODIUM [Suspect]
     Indication: DIALYSIS
     Dosage: 1000 UNITS/500ML NORMAL SALINE, HEMODIALYSIS; 6000 UNITS/1000ML NORMAL SALINE, HEMODIALYSIS
     Dates: start: 20040101, end: 20040101
  2. HEPARIN SODIUM [Suspect]
     Indication: DIALYSIS
     Dosage: 1000 UNITS/500ML NORMAL SALINE, HEMODIALYSIS; 6000 UNITS/1000ML NORMAL SALINE, HEMODIALYSIS
     Dates: start: 20040101, end: 20040101
  3. METHANOL (METHANOL) [Suspect]
     Indication: POISONING DELIBERATE
     Dosage: ORAL
     Route: 048
     Dates: start: 20040101
  4. ETHANOL              (ETHANOL) INJECTION [Concomitant]
  5. SODIUM BICARBONATE IN PLASTIC CONTAINER [Concomitant]
  6. LEUCOVORIN CALCIUM [Concomitant]

REACTIONS (3)
  - CEREBRAL HAEMORRHAGE [None]
  - DRUG INTERACTION [None]
  - DRUG TOXICITY [None]
